FAERS Safety Report 21362370 (Version 1)
Quarter: 2022Q3

REPORT INFORMATION
  Report Type: Report from Study
  Country: US (occurrence: None)
  Receive Date: 20220922
  Receipt Date: 20220922
  Transmission Date: 20221026
  Serious: Yes (Death)
  Sender: FDA-Public Use
  Company Number: US-ROCHE-3183786

PATIENT
  Age: 62 Year
  Weight: 78.2 kg

DRUGS (6)
  1. VENETOCLAX [Suspect]
     Active Substance: VENETOCLAX
     Indication: Richter^s syndrome
     Dosage: 5 DAY RAMP UP/ORAL (INITIAL VENETOCLAX DOSE RAMP-UP WILL BE DONE IN A CONDENSED FASHION OVER APPROXI
     Route: 048
     Dates: start: 20220812, end: 20220816
  2. RITUXIMAB [Suspect]
     Active Substance: RITUXIMAB
     Indication: Richter^s syndrome
     Dosage: ONCE PER CYCLE/IV
     Route: 041
     Dates: start: 20220722
  3. CYCLOPHOSPHAMIDE [Suspect]
     Active Substance: CYCLOPHOSPHAMIDE
     Indication: Richter^s syndrome
     Dosage: ONCE PER CYCLE/IV
     Route: 042
     Dates: start: 20220722
  4. DOXORUBICIN HYDROCHLORIDE [Suspect]
     Active Substance: DOXORUBICIN HYDROCHLORIDE
     Indication: Richter^s syndrome
     Dosage: ONCE PER CYCLE/IV
     Route: 042
     Dates: start: 20220722
  5. VINCRISTINE [Suspect]
     Active Substance: VINCRISTINE
     Indication: Richter^s syndrome
     Dosage: ONCE PER CYCLE/IV
     Route: 042
     Dates: start: 20220722
  6. PREDNISOLONE [Suspect]
     Active Substance: PREDNISOLONE
     Indication: Richter^s syndrome
     Dosage: ONCE PER CYCLE/IV
     Route: 042
     Dates: start: 20220722

REACTIONS (1)
  - Death [Fatal]

NARRATIVE: CASE EVENT DATE: 20220822
